FAERS Safety Report 5318590-3 (Version None)
Quarter: 2007Q2

REPORT INFORMATION
  Report Type: 
  Country: None (occurrence: None)
  Receive Date: 20070508
  Receipt Date: 20070427
  Transmission Date: 20071010
  Serious: Yes (Hospitalization, Other)
  Sender: FDA-Public Use
  Company Number: GB-JNJFOC-20070500108

PATIENT
  Sex: Female
  Weight: 51 kg

DRUGS (4)
  1. REMICADE [Suspect]
     Indication: RHEUMATOID ARTHRITIS
     Route: 042
  2. METHOTREXATE [Concomitant]
  3. OMEPRAZOLE [Concomitant]
  4. COD LIVER OIL [Concomitant]

REACTIONS (3)
  - LETHARGY [None]
  - MALAISE [None]
  - PLEURAL EFFUSION [None]
